FAERS Safety Report 8572341-8 (Version None)
Quarter: 2012Q2

REPORT INFORMATION
  Report Type: 
  Country: None (occurrence: None)
  Receive Date: 20120423
  Receipt Date: 20090923
  Transmission Date: 20120825
  Serious: Yes (Other)
  Sender: FDA-Public Use
  Company Number: PHEH2009US10524

PATIENT
  Sex: Male

DRUGS (1)
  1. EXJADE [Suspect]
     Dosage: 1500 MG DAILY, ORAL
     Route: 048
     Dates: start: 20090729, end: 20090908

REACTIONS (2)
  - BLOOD CREATININE INCREASED [None]
  - URINE ODOUR ABNORMAL [None]
